FAERS Safety Report 25278874 (Version 1)
Quarter: 2025Q2

REPORT INFORMATION
  Report Type: Spontaneous
  Country: US (occurrence: US)
  Receive Date: 20250507
  Receipt Date: 20250507
  Transmission Date: 20250717
  Serious: No
  Sender: MYLAN
  Company Number: US-MYLANLABS-2025M1037044

PATIENT
  Age: 69 Year
  Sex: Female

DRUGS (5)
  1. BREYNA [Suspect]
     Active Substance: BUDESONIDE\FORMOTEROL FUMARATE
     Indication: Cough
     Dosage: 160 PER 9 MICROGRAM, BID (2 INHALATIONS TWICE A DAY)
     Dates: start: 202503
  2. METOPROLOL [Concomitant]
     Active Substance: METOPROLOL
  3. METOPROLOL [Concomitant]
     Active Substance: METOPROLOL
  4. TRAZODONE [Concomitant]
     Active Substance: TRAZODONE HYDROCHLORIDE
     Indication: Sleep disorder
  5. CALCIUM CITRATE [Concomitant]
     Active Substance: CALCIUM CITRATE

REACTIONS (6)
  - Wrong technique in product usage process [Unknown]
  - Off label use [Unknown]
  - Device breakage [Unknown]
  - Device delivery system issue [Unknown]
  - Device malfunction [Unknown]
  - Device mechanical issue [Unknown]

NARRATIVE: CASE EVENT DATE: 20250401
